FAERS Safety Report 5907324-7 (Version None)
Quarter: 2008Q4

REPORT INFORMATION
  Report Type: 
  Country: None (occurrence: None)
  Receive Date: 20081003
  Receipt Date: 20080925
  Transmission Date: 20090506
  Serious: Yes (Other)
  Sender: FDA-Public Use
  Company Number: US-AMGEN-US309773

PATIENT
  Age: 72 Year
  Sex: Female

DRUGS (4)
  1. NEUPOGEN [Suspect]
     Route: 058
  2. NEUPOGEN [Suspect]
     Route: 058
  3. AZACITIDINE [Concomitant]
     Route: 065
  4. EPOETIN ALFA [Concomitant]
     Route: 065

REACTIONS (1)
  - ACUTE FEBRILE NEUTROPHILIC DERMATOSIS [None]
